FAERS Safety Report 4885723-2 (Version None)
Quarter: 2006Q1

REPORT INFORMATION
  Report Type: 
  Country: None (occurrence: None)
  Receive Date: 20060117
  Receipt Date: 20060103
  Transmission Date: 20060701
  Serious: Yes (Death)
  Sender: FDA-Public Use
  Company Number: 2006-UK-00006UK

PATIENT
  Sex: 0

DRUGS (1)
  1. ORAMORPH UDV (0015/0157-0159) (MORPHINE SULFATE) [Suspect]
     Indication: PALLIATIVE CARE
     Dosage: PE

REACTIONS (1)
  - DRUG ADMINISTRATION ERROR [None]
